FAERS Safety Report 4877175-3 (Version None)
Quarter: 2005Q4

REPORT INFORMATION
  Report Type: 
  Country: None (occurrence: None)
  Receive Date: 20051206
  Receipt Date: 20051003
  Transmission Date: 20060501
  Serious: No
  Sender: FDA-Public Use
  Company Number: USA0510110007

PATIENT
  Sex: Female

DRUGS (3)
  1. CYMBALTA [Suspect]
     Dosage: 60 MG
     Dates: start: 20050930, end: 20051003
  2. XANAX [Concomitant]
  3. LEXAPRO [Concomitant]

REACTIONS (2)
  - HALLUCINATION [None]
  - MANIA [None]
